FAERS Safety Report 8175100-3 (Version None)
Quarter: 2012Q1

REPORT INFORMATION
  Report Type: 
  Country: None (occurrence: None)
  Receive Date: 20120229
  Receipt Date: 20120220
  Transmission Date: 20120608
  Serious: Yes (Death)
  Sender: FDA-Public Use
  Company Number: JP-BAXTER-2010BH021758

PATIENT
  Age: 70 Year
  Sex: Female

DRUGS (3)
  1. FLUOROURACIL [Suspect]
     Indication: CHEMOTHERAPY
     Route: 041
     Dates: end: 20100114
  2. EPIRUBICIN HYDROCHLORIDE [Suspect]
     Indication: CHEMOTHERAPY
     Route: 041
     Dates: end: 20100114
  3. CYCLOPHOSPHAMIDE [Suspect]
     Indication: CHEMOTHERAPY
     Route: 041
     Dates: end: 20100114

REACTIONS (1)
  - DEATH [None]
